FAERS Safety Report 25358777 (Version 1)
Quarter: 2025Q2

REPORT INFORMATION
  Report Type: Report from Study
  Country: US (occurrence: US)
  Receive Date: 20250526
  Receipt Date: 20250526
  Transmission Date: 20250717
  Serious: Yes (Other)
  Sender: MALLINCKRODT
  Company Number: US-MALLINCKRODT-MNK202502217

PATIENT
  Age: 4 Month
  Sex: Male
  Weight: 7 kg

DRUGS (2)
  1. CORTICOTROPIN [Suspect]
     Active Substance: CORTICOTROPIN
     Indication: Infantile spasms
     Route: 030
     Dates: start: 20250327, end: 2025
  2. CORTICOTROPIN [Suspect]
     Active Substance: CORTICOTROPIN
     Route: 030
     Dates: start: 2025, end: 20250512

REACTIONS (5)
  - Infantile spasms [Unknown]
  - Condition aggravated [Unknown]
  - Dyskinesia [Unknown]
  - Eye movement disorder [Unknown]
  - Overdose [Unknown]

NARRATIVE: CASE EVENT DATE: 20250101
